FAERS Safety Report 22207633 (Version 2)
Quarter: 2023Q2

REPORT INFORMATION
  Report Type: Spontaneous
  Country: US (occurrence: US)
  Receive Date: 20230413
  Receipt Date: 20230628
  Transmission Date: 20230721
  Serious: No
  Sender: FDA-Public Use
  Company Number: US-BRISTOL-MYERS SQUIBB COMPANY-2023-052628

PATIENT
  Age: 63 Year
  Sex: Male

DRUGS (1)
  1. SPRYCEL [Suspect]
     Active Substance: DASATINIB
     Indication: Chronic myeloid leukaemia
     Route: 048
     Dates: start: 202302, end: 20230613

REACTIONS (5)
  - Pruritus [Unknown]
  - Constipation [Not Recovered/Not Resolved]
  - Stomatitis [Unknown]
  - Night sweats [Unknown]
  - Decreased appetite [Not Recovered/Not Resolved]
